FAERS Safety Report 10149848 (Version 1)
Quarter: 2014Q2

REPORT INFORMATION
  Report Type: Spontaneous
  Country: US (occurrence: US)
  Receive Date: 20140502
  Receipt Date: 20140502
  Transmission Date: 20141212
  Serious: Yes (Death, Other)
  Sender: FDA-Public Use
  Company Number: US-GILEAD-2014-0101334

PATIENT
  Sex: Male

DRUGS (3)
  1. LETAIRIS [Suspect]
     Indication: PULMONARY ARTERIAL HYPERTENSION
     Dosage: 5 MG, QD
     Route: 065
     Dates: start: 20140308
  2. PREDNISONE [Concomitant]
     Dates: start: 20140210
  3. VALACYCLOVIR [Concomitant]
     Dates: start: 20131025, end: 20131027

REACTIONS (1)
  - Death [Fatal]
